FAERS Safety Report 7895820-5 (Version None)
Quarter: 2011Q4

REPORT INFORMATION
  Report Type: 
  Country: None (occurrence: None)
  Receive Date: 20111104
  Receipt Date: 20111104
  Transmission Date: 20120403
  Serious: Yes (Other)
  Sender: FDA-Public Use
  Company Number: None

PATIENT
  Sex: Male

DRUGS (1)
  1. LISTERINE POCKETPAKS (ORAL CARE PRODUCTS) FILMSTRIP [Suspect]
     Indication: PRODUCT USED FOR UNKNOWN INDICATION
     Dosage: ^TOOK SOME STRIPS^ ORAL
     Route: 048

REACTIONS (4)
  - ORAL DISCOMFORT [None]
  - APHTHOUS STOMATITIS [None]
  - FOAMING AT MOUTH [None]
  - SALIVARY HYPERSECRETION [None]
